FAERS Safety Report 21381658 (Version 1)
Quarter: 2022Q3

REPORT INFORMATION
  Report Type: Spontaneous
  Country: US (occurrence: None)
  Receive Date: 20220926
  Receipt Date: 20220926
  Transmission Date: 20221026
  Serious: Yes (Hospitalization)
  Sender: FDA-Public Use
  Company Number: None

PATIENT
  Age: 67 Year
  Sex: Male
  Weight: 90.4 kg

DRUGS (3)
  1. NIVOLUMAB [Suspect]
     Active Substance: NIVOLUMAB
     Indication: Bladder adenocarcinoma stage unspecified
     Dates: start: 20220816
  2. IPILIMUMAB [Suspect]
     Active Substance: IPILIMUMAB
     Indication: Bladder adenocarcinoma stage unspecified
     Dates: start: 20220816
  3. IPILIMUMAB [Suspect]
     Active Substance: IPILIMUMAB
     Indication: Adenocarcinoma metastatic

REACTIONS (3)
  - Hyperglycaemia [None]
  - Diabetic ketoacidosis [None]
  - Pneumonia aspiration [None]

NARRATIVE: CASE EVENT DATE: 20220925
